FAERS Safety Report 6680899-9 (Version None)
Quarter: 2010Q2

REPORT INFORMATION
  Report Type: 
  Country: None (occurrence: None)
  Receive Date: 20100413
  Receipt Date: 20100413
  Transmission Date: 20101027
  Serious: Yes (Hospitalization)
  Sender: FDA-Public Use
  Company Number: None

PATIENT
  Age: 36 Year
  Sex: Female
  Weight: 104.3273 kg

DRUGS (2)
  1. LITHIUM CARBONATE [Suspect]
  2. HALDOL [Suspect]

REACTIONS (9)
  - ABNORMAL DREAMS [None]
  - DISORIENTATION [None]
  - EMOTIONAL DISORDER [None]
  - FEAR OF FALLING [None]
  - NEGATIVE THOUGHTS [None]
  - OVERDOSE [None]
  - PARANOIA [None]
  - TREMOR [None]
  - UNEVALUABLE EVENT [None]
